FAERS Safety Report 4427892-4 (Version None)
Quarter: 2004Q3

REPORT INFORMATION
  Report Type: 
  Country: None (occurrence: None)
  Receive Date: 20040813
  Receipt Date: 20040806
  Transmission Date: 20050211
  Serious: Yes (Hospitalization, Disabling)
  Sender: FDA-Public Use
  Company Number: TPA2004A00936

PATIENT
  Age: 47 Year
  Sex: Female
  Weight: 136.0791 kg

DRUGS (8)
  1. ACTOS [Suspect]
     Indication: DIABETES MELLITUS NON-INSULIN-DEPENDENT
     Dosage: 45 MG, 2 IN 1 D, PER ORAL
     Route: 048
  2. PRANDIN [Concomitant]
  3. GLIPIZIDE [Concomitant]
  4. FUROSEMIDE [Concomitant]
  5. HYDROXYZINE [Concomitant]
  6. SPIRONOLACTONE [Concomitant]
  7. ACCOLATE [Concomitant]
  8. ZOLOFT [Concomitant]

REACTIONS (2)
  - CARDIAC FAILURE CONGESTIVE [None]
  - DYSPNOEA [None]
